FAERS Safety Report 9972939 (Version 1)
Quarter: 2014Q1

REPORT INFORMATION
  Report Type: Spontaneous
  Country: US (occurrence: US)
  Receive Date: 20140306
  Receipt Date: 20140306
  Transmission Date: 20141002
  Serious: Yes (Other)
  Sender: FDA-Public Use
  Company Number: US-PFIZER INC-2014060157

PATIENT
  Age: 80 Year
  Sex: Female
  Weight: 82.09 kg

DRUGS (3)
  1. LYRICA [Suspect]
     Indication: DIABETIC NEUROPATHY
     Dosage: 75 MG, 1X/DAY
     Route: 048
     Dates: start: 2013
  2. XARELTO [Concomitant]
     Dosage: UNK
  3. WARFARIN [Concomitant]
     Dosage: UNK

REACTIONS (5)
  - Pulmonary hypertension [Unknown]
  - Gait disturbance [Unknown]
  - Paraesthesia [Unknown]
  - Asthenia [Unknown]
  - Burning sensation [Unknown]
